FAERS Safety Report 4356289-0 (Version None)
Quarter: 2004Q2

REPORT INFORMATION
  Report Type: 
  Country: None (occurrence: None)
  Receive Date: 20040506
  Receipt Date: 20040423
  Transmission Date: 20050107
  Serious: Yes (Life-Threatening, Hospitalization, Other)
  Sender: FDA-Public Use
  Company Number: 2003027729

PATIENT
  Age: 57 Year
  Sex: Female

DRUGS (11)
  1. ZYRTEC [Suspect]
     Indication: ILL-DEFINED DISORDER
     Dosage: ORAL
     Route: 048
     Dates: end: 20030619
  2. ANTISEPTIC AND DESINFECTANT (ANTISEPTIC AND DESINFECTANS) [Suspect]
     Indication: ILL-DEFINED DISORDER
     Dosage: ORAL
     Route: 048
     Dates: start: 20030618, end: 20030618
  3. DIFENIDOL HYDROCHLORIDE     (DIFENIDOL HYDROCHLORIDE) [Suspect]
     Indication: ILL-DEFINED DISORDER
     Dosage: ORAL
     Route: 048
     Dates: end: 20030619
  4. PAROXETINE HCL [Suspect]
     Indication: ILL-DEFINED DISORDER
     Dosage: ORAL
     Route: 048
     Dates: end: 20030619
  5. DISTIGMINE HYDROCHLORIDE (DISTIGMINE HYDROCHLORIDE) [Suspect]
     Indication: ILL-DEFINED DISORDER
     Dosage: ORAL
     Route: 048
     Dates: end: 20030619
  6. FLUNITRAZEPAM (FLUNITRAZEPAM) [Suspect]
     Indication: ILL-DEFINED DISORDER
     Dosage: ORAL
     Route: 048
     Dates: end: 20030619
  7. BROMISOVAL (BROMISOVAL) [Concomitant]
  8. BARBITAL (BARBITAL) [Concomitant]
  9. FLUVOXAMINE MALEATE [Concomitant]
  10. NITRAZEPAM [Concomitant]
  11. MAGNESIUM OXIDE (MAGNESIUM OXIDE) [Concomitant]

REACTIONS (19)
  - ABDOMINAL PAIN UPPER [None]
  - ALANINE AMINOTRANSFERASE INCREASED [None]
  - ASPARTATE AMINOTRANSFERASE INCREASED [None]
  - BLOOD BILIRUBIN INCREASED [None]
  - BLOOD LACTATE DEHYDROGENASE INCREASED [None]
  - DISINFECTANT POISONING [None]
  - DIZZINESS [None]
  - DRUG INEFFECTIVE [None]
  - DRUG INTERACTION [None]
  - DYSPNOEA [None]
  - ELECTROCARDIOGRAM QT CORRECTED INTERVAL PROLONGED [None]
  - GAMMA-GLUTAMYLTRANSFERASE INCREASED [None]
  - HEPATIC FUNCTION ABNORMAL [None]
  - NAUSEA [None]
  - PO2 DECREASED [None]
  - PULMONARY CONGESTION [None]
  - SUICIDE ATTEMPT [None]
  - TORSADE DE POINTES [None]
  - VENTRICULAR TACHYCARDIA [None]
